FAERS Safety Report 16128321 (Version 1)
Quarter: 2019Q1

REPORT INFORMATION
  Report Type: Report from Study
  Country: US (occurrence: US)
  Receive Date: 20190328
  Receipt Date: 20190328
  Transmission Date: 20190418
  Serious: Yes (Death, Other)
  Sender: FDA-Public Use
  Company Number: US-TEVA-2019-US-1029998

PATIENT
  Age: 8 Year
  Sex: Female

DRUGS (4)
  1. HEPARIN [Suspect]
     Active Substance: HEPARIN SODIUM
     Indication: THROMBOSIS
     Route: 042
  2. NITRIC OXIDE. [Concomitant]
     Active Substance: NITRIC OXIDE
     Indication: DECREASED VENTRICULAR AFTERLOAD
     Dosage: DELIVERED VIA HIGH FLOW NASAL CANNULAE
     Route: 055
  3. EPOPROSTENOL. [Concomitant]
     Active Substance: EPOPROSTENOL
     Indication: DECREASED VENTRICULAR AFTERLOAD
     Dosage: DELIVERED VIA HIGH FLOW NASAL CANNULAE
     Route: 055
  4. BIVALIRUDIN. [Suspect]
     Active Substance: BIVALIRUDIN
     Indication: THROMBOSIS
     Route: 065

REACTIONS (3)
  - Gastrointestinal haemorrhage [Fatal]
  - Epistaxis [Unknown]
  - Heparin-induced thrombocytopenia [Unknown]
